FAERS Safety Report 9027979 (Version 1)
Quarter: 2013Q1

REPORT INFORMATION
  Report Type: Spontaneous
  Country: US (occurrence: None)
  Receive Date: 20130114
  Receipt Date: 20130114
  Transmission Date: 20140127
  Serious: No
  Sender: FDA-Public Use
  Company Number: None

PATIENT
  Age: 90 Year
  Sex: Female
  Weight: 59.88 kg

DRUGS (1)
  1. LINZESS [Suspect]
     Dosage: 145 MGS 1 DAILY
     Dates: start: 20121204

REACTIONS (3)
  - Syncope [None]
  - Blood pressure increased [None]
  - Dizziness [None]
